FAERS Safety Report 9528029 (Version 1)
Quarter: 2013Q1

REPORT INFORMATION
  Report Type: Spontaneous
  Country: US (occurrence: None)
  Receive Date: 20130314
  Receipt Date: 20130314
  Transmission Date: 20140127
  Serious: No
  Sender: FDA-Public Use
  Company Number: 1211USA009994

PATIENT
  Age: 63 Year
  Sex: Male

DRUGS (3)
  1. VICTRELIS (BOCEPREVIR) CAPSULE, 200MG [Suspect]
     Indication: HEPATITIS C
     Dosage: 800 MG, TID, ORAL
     Route: 048
     Dates: start: 20121107
  2. RIBAPAK (RIBAVIRIN) [Suspect]
     Indication: HEPATITIS C
     Dosage: 600 MG, BID, ORAL
     Route: 048
     Dates: start: 20121024
  3. PEGASYS (PEGINTERFERON ALFA-2A) [Suspect]
     Dosage: 180 MICROGRAM, QW, SUBCUTANEOUS
     Route: 058
     Dates: start: 20121024

REACTIONS (3)
  - Fatigue [None]
  - Irritability [None]
  - Abdominal pain [None]
